FAERS Safety Report 9491743 (Version 2)
Quarter: 2013Q4

REPORT INFORMATION
  Report Type: Spontaneous
  Country: FR (occurrence: FR)
  Receive Date: 20130830
  Receipt Date: 20131022
  Transmission Date: 20140711
  Serious: Yes (Hospitalization)
  Sender: FDA-Public Use
  Company Number: FR-FRI-1000048137

PATIENT
  Age: 72 Year
  Sex: Female

DRUGS (7)
  1. MILNACIPRAN [Suspect]
     Indication: MENTAL DISORDER
     Dosage: 25 MG
     Route: 048
     Dates: start: 20130803, end: 20130803
  2. MILNACIPRAN [Suspect]
     Indication: THOUGHT INSERTION
  3. DEROXAT [Suspect]
     Indication: THOUGHT INSERTION
     Dosage: 10 MG
     Route: 048
     Dates: start: 20130725
  4. DEROXAT [Suspect]
     Indication: MENTAL DISORDER
     Dosage: 20 MG
     Route: 048
     Dates: start: 20130730, end: 20130802
  5. RISPERDAL [Concomitant]
     Dosage: 1 MG
     Dates: end: 20130803
  6. COOLMETEC [Concomitant]
     Dosage: 40 MG
  7. ATARAX [Concomitant]
     Dates: start: 20130731, end: 20130803

REACTIONS (1)
  - Serotonin syndrome [Recovered/Resolved]
